FAERS Safety Report 7867864-0 (Version None)
Quarter: 2011Q4

REPORT INFORMATION
  Report Type: 
  Country: None (occurrence: None)
  Receive Date: 20111025
  Receipt Date: 20111013
  Transmission Date: 20120403
  Serious: No
  Sender: FDA-Public Use
  Company Number: DSU-2011-07784

PATIENT

DRUGS (2)
  1. OLMESARTAN MEDOXOMIL [Suspect]
     Indication: TYPE 2 DIABETES MELLITUS
  2. OLMESARTAN MEDOXOMIL [Suspect]
     Indication: DIABETIC NEPHROPATHY

REACTIONS (1)
  - CARDIAC DEATH [None]
